FAERS Safety Report 8956339 (Version 3)
Quarter: 2013Q1

REPORT INFORMATION
  Report Type: Spontaneous
  Country: NL (occurrence: NL)
  Receive Date: 20121210
  Receipt Date: 20130319
  Transmission Date: 20140127
  Serious: Yes (Hospitalization)
  Sender: FDA-Public Use
  Company Number: NL-SANOFI-AVENTIS-2012SA088850

PATIENT
  Age: 70 Year
  Sex: Female
  Weight: 90 kg

DRUGS (10)
  1. PLAQUENIL [Suspect]
     Indication: PRODUCT USED FOR UNKNOWN INDICATION
     Route: 065
     Dates: start: 20110601
  2. BLINDED THERAPY [Suspect]
     Indication: RHEUMATOID ARTHRITIS
     Route: 065
     Dates: start: 20101207
  3. BLINDED THERAPY [Suspect]
     Indication: RHEUMATOID ARTHRITIS
     Dosage: FREQUENCY-1 IN 4 WEEKS
     Route: 042
     Dates: start: 20101207
  4. BLINDED THERAPY [Suspect]
     Indication: RHEUMATOID ARTHRITIS
     Dosage: FREQUENCY-1 IN 4 WEEKS
     Route: 042
     Dates: start: 20120726
  5. BLINDED THERAPY [Suspect]
     Indication: RHEUMATOID ARTHRITIS
     Dosage: FREQUENCY-1 IN 4 WEEKS
     Route: 042
     Dates: start: 20120823
  6. BLINDED THERAPY [Suspect]
     Indication: RHEUMATOID ARTHRITIS
     Dosage: FREQUENCY-1 IN 4 WEEKS
     Route: 042
     Dates: start: 20120920
  7. BLINDED THERAPY [Suspect]
     Indication: RHEUMATOID ARTHRITIS
     Route: 042
     Dates: start: 20121018, end: 20121018
  8. ALLOPURINOL [Concomitant]
  9. SIMVASTATIN [Concomitant]
  10. ATACAND [Concomitant]

REACTIONS (1)
  - Urosepsis [Recovered/Resolved]
